FAERS Safety Report 24162597 (Version 1)
Quarter: 2024Q3

REPORT INFORMATION
  Report Type: Spontaneous
  Country: GB (occurrence: GB)
  Receive Date: 20240801
  Receipt Date: 20240801
  Transmission Date: 20241016
  Serious: Yes (Life-Threatening, Other)
  Sender: IRON THERAPEUTICS
  Company Number: None

PATIENT
  Age: 52 Year
  Sex: Female
  Weight: 89 kg

DRUGS (7)
  1. FERRIC MALTOL [Suspect]
     Active Substance: FERRIC MALTOL
     Indication: Product used for unknown indication
     Dosage: 30 MG, IN TWO DAYS
     Route: 065
     Dates: start: 20240607, end: 20240711
  2. FOSFOMYCIN [Concomitant]
     Active Substance: FOSFOMYCIN
     Indication: Adverse drug reaction
     Dosage: UNK, ONE OFF DOSE AND REPEAT AFTER 48 HOURS IF SYMPTOMS CONTINUE
     Route: 065
     Dates: start: 20240411, end: 20240710
  3. EZETIMIBE [Concomitant]
     Active Substance: EZETIMIBE
     Indication: Product used for unknown indication
     Dosage: 1 DOSAGE FORM, QD
     Route: 065
     Dates: start: 20240514, end: 20240607
  4. MONTELUKAST [Concomitant]
     Active Substance: MONTELUKAST SODIUM
     Indication: Product used for unknown indication
     Dosage: 1 DOSAGE FORM, QD, AT NIGHT
     Route: 065
     Dates: start: 20240516, end: 20240628
  5. EPIPEN [Concomitant]
     Active Substance: EPINEPHRINE
     Indication: Product used for unknown indication
     Dosage: 300MCG/0.3ML FOR USE IF SEVERE ALLERGY REACTION AS PER WRITTEN INFORMATION
     Route: 065
     Dates: start: 20240531
  6. CETIRIZINE [Concomitant]
     Active Substance: CETIRIZINE HYDROCHLORIDE
     Indication: Hypersensitivity
     Dosage: 1 DOSAGE FORM, QD, WHEN NEEDED
     Route: 065
     Dates: start: 20240607, end: 20240704
  7. ONDANSETRON [Concomitant]
     Active Substance: ONDANSETRON
     Indication: Nausea
     Dosage: 1 DOSAGE FORM, TID, ONE EVERY EIGHT HOURS, IF NEEDED
     Route: 065
     Dates: start: 20240607

REACTIONS (2)
  - Anaphylactic reaction [Unknown]
  - Off label use [Unknown]

NARRATIVE: CASE EVENT DATE: 20240101
